FAERS Safety Report 10432392 (Version 1)
Quarter: 2014Q3

REPORT INFORMATION
  Report Type: Spontaneous
  Country: US (occurrence: None)
  Receive Date: 20140904
  Receipt Date: 20140904
  Transmission Date: 20150326
  Serious: Yes (Disabling)
  Sender: FDA-Public Use
  Company Number: None

PATIENT
  Age: 57 Year
  Sex: Female
  Weight: 2.31 kg

DRUGS (1)
  1. OXYCODONE 10 MG ZYDUS [Suspect]
     Active Substance: OXYCODONE
     Indication: FIBROMYALGIA
     Dosage: 1 PILL, ONCE DAILY, TAKEN BY MOUTH
     Route: 048
     Dates: start: 20140820, end: 20140823

REACTIONS (3)
  - Feeling abnormal [None]
  - Tremor [None]
  - Nausea [None]

NARRATIVE: CASE EVENT DATE: 20140821
